FAERS Safety Report 8843155 (Version 2)
Quarter: 2012Q4

REPORT INFORMATION
  Report Type: 
  Country: US (occurrence: US)
  Receive Date: 20121016
  Receipt Date: 20121121
  Transmission Date: 20130627
  Serious: Yes (Hospitalization, Other)
  Sender: FDA-Public Use
  Company Number: US-PFIZER INC-2012254401

PATIENT
  Age: 78 Year
  Sex: Female
  Weight: 57.14 kg

DRUGS (10)
  1. LYRICA [Suspect]
     Indication: DIABETIC NEUROPATHY
     Dosage: 25 mg, UNK
     Route: 048
  2. LYRICA [Suspect]
     Dosage: 75 mg, 3x/day
  3. TOVIAZ [Suspect]
     Indication: BLADDER INCONTINENCE
     Dosage: 8 mg, 1x/day
     Route: 048
     Dates: start: 2012
  4. SYNTHROID [Concomitant]
     Indication: POSTOPERATIVE CARE
     Dosage: UNK
  5. ARTHROTEC [Concomitant]
     Indication: ARTHRITIS
     Dosage: UNK
  6. BONIVA [Concomitant]
     Dosage: UNK
  7. ENALAPRIL [Concomitant]
     Dosage: UNK
  8. JANUVIA [Concomitant]
     Dosage: UNK
  9. PLAVIX [Concomitant]
     Dosage: UNK
  10. PRAVASTATIN [Concomitant]
     Dosage: UNK

REACTIONS (7)
  - Malaise [Recovered/Resolved]
  - Localised infection [Recovered/Resolved]
  - Joint swelling [Recovered/Resolved]
  - Gait disturbance [Recovered/Resolved]
  - Joint range of motion decreased [Recovered/Resolved]
  - Diabetic neuropathy [Unknown]
  - Drug ineffective [Unknown]
